FAERS Safety Report 19408404 (Version 1)
Quarter: 2021Q2

REPORT INFORMATION
  Report Type: Spontaneous
  Country: US (occurrence: US)
  Receive Date: 20210612
  Receipt Date: 20210612
  Transmission Date: 20210717
  Serious: No
  Sender: FDA-Public Use
  Company Number: US-TEVA-2021-US-1914317

PATIENT
  Age: 68 Year
  Sex: Female
  Weight: 52.62 kg

DRUGS (15)
  1. AMLODIPINE [Concomitant]
     Active Substance: AMLODIPINE BESYLATE
  2. CARBAMAZEPINE. [Concomitant]
     Active Substance: CARBAMAZEPINE
  3. AJOVY [Suspect]
     Active Substance: FREMANEZUMAB-VFRM
     Indication: VESTIBULAR MIGRAINE
     Route: 065
     Dates: start: 20210224
  4. TOPAMAX [Concomitant]
     Active Substance: TOPIRAMATE
  5. ATORVASTATIN [Concomitant]
     Active Substance: ATORVASTATIN
  6. OMEPRAZOLE. [Concomitant]
     Active Substance: OMEPRAZOLE
  7. AJOVY [Suspect]
     Active Substance: FREMANEZUMAB-VFRM
  8. BABY ASPIRIN [Concomitant]
     Active Substance: ASPIRIN
  9. VITAMIN B SUPPLEMENT [Concomitant]
  10. RELAFEN [Concomitant]
     Active Substance: NABUMETONE
  11. TURMERIC SUPPLEMENT [Concomitant]
  12. FLONASE [Concomitant]
     Active Substance: FLUTICASONE PROPIONATE
  13. METOPROLOL. [Concomitant]
     Active Substance: METOPROLOL
  14. ALLEGRA SEASONAL [Concomitant]
  15. CALCIUM +VITAMIN D [Concomitant]

REACTIONS (2)
  - Injection site erythema [Recovered/Resolved]
  - Injection site rash [Recovered/Resolved]
